FAERS Safety Report 7502752-0 (Version None)
Quarter: 2011Q2

REPORT INFORMATION
  Report Type: 
  Country: None (occurrence: None)
  Receive Date: 20110525
  Receipt Date: 20110519
  Transmission Date: 20111010
  Serious: Yes (Hospitalization)
  Sender: FDA-Public Use
  Company Number: FR-PFIZER INC-2011107521

PATIENT
  Age: 70 Year
  Sex: Male

DRUGS (4)
  1. ALDACTONE [Suspect]
     Dosage: UNK
     Route: 048
     Dates: start: 20110201, end: 20110501
  2. LASIX [Suspect]
     Dosage: UNK
     Route: 048
     Dates: start: 20110201, end: 20110501
  3. ESIDRIX [Suspect]
     Dosage: UNK
     Route: 048
     Dates: start: 20110201, end: 20110501
  4. LEVEMIR [Suspect]
     Dosage: UNK
     Route: 058
     Dates: start: 20110201, end: 20110501

REACTIONS (3)
  - TOXIC SKIN ERUPTION [None]
  - DERMATITIS EXFOLIATIVE [None]
  - VASCULITIS [None]
